FAERS Safety Report 21530015 (Version 2)
Quarter: 2022Q4

REPORT INFORMATION
  Report Type: Report from Study
  Country: US (occurrence: US)
  Receive Date: 20221031
  Receipt Date: 20221226
  Transmission Date: 20230112
  Serious: Yes (Other)
  Sender: FDA-Public Use
  Company Number: US-ABBVIE-4179689

PATIENT
  Age: 37 Year
  Sex: Female

DRUGS (3)
  1. HUMIRA [Suspect]
     Active Substance: ADALIMUMAB
     Indication: Colitis ulcerative
     Route: 058
  2. HUMIRA [Suspect]
     Active Substance: ADALIMUMAB
     Indication: Crohn^s disease
  3. PFIZER-BIONTECH COVID-19 VACCINE [Concomitant]
     Active Substance: TOZINAMERAN
     Indication: COVID-19 immunisation
     Route: 030

REACTIONS (10)
  - Coronary artery bypass [Recovered/Resolved]
  - Coronary artery bypass [Recovering/Resolving]
  - Road traffic accident [Recovering/Resolving]
  - Unevaluable event [Not Recovered/Not Resolved]
  - Cervical vertebral fracture [Unknown]
  - Therapeutic product effect decreased [Not Recovered/Not Resolved]
  - Musculoskeletal pain [Unknown]
  - Dyspepsia [Unknown]
  - Diarrhoea [Unknown]
  - Gastrooesophageal reflux disease [Unknown]

NARRATIVE: CASE EVENT DATE: 20220426
